FAERS Safety Report 7342911-3 (Version None)
Quarter: 2011Q1

REPORT INFORMATION
  Report Type: 
  Country: None (occurrence: None)
  Receive Date: 20110302
  Receipt Date: 20110222
  Transmission Date: 20110831
  Serious: Yes (Hospitalization)
  Sender: FDA-Public Use
  Company Number: 2010MA004005

PATIENT
  Age: 24 Year
  Sex: Male

DRUGS (17)
  1. TRUVADA [Concomitant]
  2. FEVERALL [Suspect]
     Dosage: 500 MG, X6, PO
     Route: 048
  3. MIRTAZAPINE [Suspect]
     Indication: DISSOCIATIVE IDENTITY DISORDER
     Dosage: 45 MG, X4, PO
     Route: 048
     Dates: start: 20101008
  4. CLOZARIL [Suspect]
     Dosage: PO
     Route: 048
     Dates: start: 20101011
  5. ALCOHOL (ETHANOL) [Suspect]
     Dosage: 4 PINTS
  6. LITHIUM CARBONATE [Suspect]
     Dosage: 1200 MG;
  7. LITHIUM CARBONATE [Suspect]
  8. CLOZARIL [Suspect]
     Dosage: 1900 MG,
     Dates: start: 20101008
  9. FEVERALL [Suspect]
     Dosage: 500 MG,X8, PO
     Route: 048
  10. NIQUITIN [Concomitant]
  11. MIRTAZAPINE [Suspect]
     Dosage: 45 MHG, PO
     Route: 048
  12. LITHIUM CARBONATE [Suspect]
     Indication: PERSONALITY DISORDER
     Dosage: 400 MG, X12, PO
     Route: 048
  13. KALETRA [Concomitant]
  14. IBUPROFEN [Suspect]
     Dosage: 200 MG,X12, PO
     Route: 048
  15. CLOZARIL [Suspect]
     Indication: SCHIZOPHRENIA
     Dosage: 250 MG, BID, PO
     Route: 048
     Dates: start: 20100429
  16. HYOSCINE HBR HYT [Concomitant]
  17. LACTULOSE [Concomitant]

REACTIONS (3)
  - MULTIPLE DRUG OVERDOSE INTENTIONAL [None]
  - OFF LABEL USE [None]
  - SUICIDE ATTEMPT [None]
